FAERS Safety Report 13658157 (Version 1)
Quarter: 2017Q2

REPORT INFORMATION
  Report Type: Spontaneous
  Country: SE (occurrence: SE)
  Receive Date: 20170616
  Receipt Date: 20170616
  Transmission Date: 20170830
  Serious: Yes (Death)
  Sender: FDA-Public Use
  Company Number: SE-ROCHE-1950373

PATIENT
  Age: 27 Year
  Sex: Male

DRUGS (5)
  1. METHADONE [Suspect]
     Active Substance: METHADONE HYDROCHLORIDE
     Indication: PSYCHOTIC DISORDER
     Route: 065
  2. DIAZEPAM. [Suspect]
     Active Substance: DIAZEPAM
     Indication: PSYCHOTIC DISORDER
     Route: 065
  3. METAMFETAMINE [Suspect]
     Active Substance: METHAMPHETAMINE
     Indication: PSYCHOTIC DISORDER
     Route: 065
  4. BUPRENORPHINE. [Suspect]
     Active Substance: BUPRENORPHINE
     Indication: PSYCHOTIC DISORDER
     Route: 065
  5. PREGABALIN. [Suspect]
     Active Substance: PREGABALIN
     Indication: PSYCHOTIC DISORDER
     Route: 065

REACTIONS (3)
  - Hepatic congestion [Fatal]
  - Toxicity to various agents [Fatal]
  - Pulmonary congestion [Fatal]
